FAERS Safety Report 8743074 (Version 2)
Quarter: 2012Q4

REPORT INFORMATION
  Report Type: 
  Country: AR (occurrence: AR)
  Receive Date: 20120824
  Receipt Date: 20121012
  Transmission Date: 20130627
  Serious: Yes (Death, Life-Threatening, Hospitalization, Other)
  Sender: FDA-Public Use
  Company Number: PHHY2012AR072528

PATIENT
  Age: 80 Year
  Sex: Female

DRUGS (1)
  1. NAPROXEN [Suspect]
     Indication: PYREXIA

REACTIONS (21)
  - Cardio-respiratory arrest [Fatal]
  - Hodgkin^s disease stage IV [Fatal]
  - Lymphadenopathy [Fatal]
  - Abdominal mass [Fatal]
  - Gastric ulcer haemorrhage [Unknown]
  - Vomiting [Unknown]
  - Melaena [Not Recovered/Not Resolved]
  - Abdominal pain upper [Unknown]
  - Hyperhidrosis [Unknown]
  - Dyspnoea [Unknown]
  - Blood pressure decreased [Unknown]
  - Tachypnoea [Unknown]
  - Tachycardia [Unknown]
  - Haemodynamic instability [Unknown]
  - Fluid overload [Unknown]
  - Haematochezia [Not Recovered/Not Resolved]
  - Thrombosis [Unknown]
  - Oedema peripheral [Unknown]
  - Localised oedema [Unknown]
  - Eye oedema [Unknown]
  - Conjunctival oedema [Unknown]
